FAERS Safety Report 6490868-X (Version None)
Quarter: 2009Q4

REPORT INFORMATION
  Report Type: 
  Country: None (occurrence: None)
  Receive Date: 20091211
  Receipt Date: 20091203
  Transmission Date: 20100525
  Serious: Yes (Other)
  Sender: FDA-Public Use
  Company Number: DE-PFIZER INC-2009293551

PATIENT
  Age: 70 Year
  Sex: Male
  Weight: 140 kg

DRUGS (7)
  1. TOVIAZ [Suspect]
     Indication: URGE INCONTINENCE
     Dosage: 8 MG, 1X/DAY
     Route: 048
     Dates: start: 20090801
  2. MICARDIS HCT [Concomitant]
     Indication: HYPERTENSION
     Dosage: 80/12.5 MG
  3. ATACAND [Concomitant]
     Indication: HYPERTENSION
     Dosage: 8 MG
  4. AMLODIPINE [Concomitant]
     Indication: HYPERTENSION
     Dosage: 5 MG
  5. SITAGLIPTIN [Concomitant]
     Dosage: 50/100
  6. MARCUMAR [Concomitant]
     Indication: THROMBOSIS
  7. METFORMIN [Concomitant]
     Dosage: 850 (UNIT NOT STATED)
     Route: 048

REACTIONS (4)
  - CIRCULATORY COLLAPSE [None]
  - DIZZINESS [None]
  - DRUG EFFECT DECREASED [None]
  - VERTIGO [None]
